FAERS Safety Report 8136392-X (Version None)
Quarter: 2012Q1

REPORT INFORMATION
  Report Type: 
  Country: None (occurrence: None)
  Receive Date: 20120214
  Receipt Date: 20120203
  Transmission Date: 20120608
  Serious: Yes (Other)
  Sender: FDA-Public Use
  Company Number: FR-ELI_LILLY_AND_COMPANY-FR201111002242

PATIENT
  Age: 48 Year
  Sex: Female
  Weight: 54 kg

DRUGS (14)
  1. TRAMADOL HCL [Concomitant]
     Dosage: 50 MG, OTHER 4 TO 6 TIMES DAILY
  2. OMEPRAZOLE [Concomitant]
     Dosage: 20 MG, QD
  3. CORTISONE ACETATE [Concomitant]
     Indication: SPONDYLITIS
     Dosage: UNK
     Dates: start: 19810101
  4. PREDNISONE TAB [Concomitant]
     Indication: PSORIATIC ARTHROPATHY
     Dosage: 12 MG, QD
     Route: 048
     Dates: start: 19920101
  5. CIMZIA [Concomitant]
     Dosage: 200 MG, 2/M
     Route: 058
     Dates: start: 20110101
  6. PIASCLEDINE                        /00809501/ [Concomitant]
     Dosage: 1 DF, QD
  7. VITAMIN D [Concomitant]
     Dosage: UNK, OTHER EVERY TWO MONTHS
  8. TUMOR NECROSIS FACTOR ALPHA (TNF-ALPHA) INHIB [Concomitant]
     Indication: PSORIATIC ARTHROPATHY
     Dosage: UNK
     Dates: start: 20010101
  9. FORTEO [Suspect]
     Indication: OSTEOPOROSIS
     Dosage: 20 UG, QD
     Route: 058
     Dates: start: 20110522, end: 20111025
  10. CALTRATE + D                       /00944201/ [Concomitant]
     Dosage: 1.5 DF, QD
  11. NAPROXEN [Concomitant]
     Indication: PSORIATIC ARTHROPATHY
     Dosage: 550 MG, BID
     Route: 048
  12. TEMAZEPAM [Concomitant]
     Dosage: 1 DF, QD
  13. FORTEO [Suspect]
     Dosage: 20 UG, QD
     Route: 058
     Dates: start: 20111101
  14. CIMZIA [Concomitant]
     Dosage: 200 MG, MONTHLY (1/M)
     Route: 058

REACTIONS (6)
  - RENAL IMPAIRMENT [None]
  - FOOT FRACTURE [None]
  - BLOOD UREA INCREASED [None]
  - INCORRECT STORAGE OF DRUG [None]
  - OFF LABEL USE [None]
  - CREATININE RENAL CLEARANCE DECREASED [None]
